FAERS Safety Report 22328982 (Version 1)
Quarter: 2023Q2

REPORT INFORMATION
  Report Type: Spontaneous
  Country: US (occurrence: US)
  Receive Date: 20230517
  Receipt Date: 20230517
  Transmission Date: 20230721
  Serious: No
  Sender: FDA-Public Use
  Company Number: US-JNJFOC-20230527925

PATIENT
  Age: 41 Year
  Sex: Female

DRUGS (7)
  1. MOTRIN [Suspect]
     Active Substance: IBUPROFEN
     Indication: Headache
     Route: 065
     Dates: start: 202305
  2. MOTRIN [Suspect]
     Active Substance: IBUPROFEN
     Indication: Pain in jaw
  3. MOTRIN [Suspect]
     Active Substance: IBUPROFEN
     Indication: Pain in extremity
  4. MOTRIN [Suspect]
     Active Substance: IBUPROFEN
     Indication: Arthralgia
  5. UPTRAVI [Concomitant]
     Active Substance: SELEXIPAG
     Indication: Pulmonary arterial hypertension
     Route: 048
     Dates: start: 20230430
  6. SILDENAFIL [Concomitant]
     Active Substance: SILDENAFIL
     Indication: Product used for unknown indication
     Route: 065
  7. AMBRISENTAN [Concomitant]
     Active Substance: AMBRISENTAN
     Indication: Product used for unknown indication
     Route: 065

REACTIONS (1)
  - Drug ineffective [Unknown]

NARRATIVE: CASE EVENT DATE: 20230501
